FAERS Safety Report 5271134-7 (Version None)
Quarter: 2007Q1

REPORT INFORMATION
  Report Type: 
  Country: None (occurrence: None)
  Receive Date: 20070315
  Receipt Date: 20070227
  Transmission Date: 20070707
  Serious: Yes (Hospitalization)
  Sender: FDA-Public Use
  Company Number: DSA_29559_2007

PATIENT
  Age: 60 Year
  Sex: Female

DRUGS (5)
  1. TILDIEM [Suspect]
     Dosage: 60 MG QD PO
     Route: 048
     Dates: start: 20061204, end: 20070108
  2. CLAVENTIN [Suspect]
     Indication: ABSCESS
     Dosage: 1000 MG TID IV
     Route: 042
     Dates: start: 20061218, end: 20061231
  3. FLAGYL  /00012501/ [Concomitant]
  4. ROCEPHIN [Concomitant]
  5. NOVOMIX  /01475801/ [Concomitant]

REACTIONS (14)
  - C-REACTIVE PROTEIN INCREASED [None]
  - COMPLEMENT FACTOR INCREASED [None]
  - CYTOMEGALOVIRUS ANTIBODY POSITIVE [None]
  - EPSTEIN-BARR VIRUS ANTIBODY POSITIVE [None]
  - FACE OEDEMA [None]
  - HERPES SIMPLEX SEROLOGY POSITIVE [None]
  - NEUTROPHIL COUNT INCREASED [None]
  - PARVOVIRUS B19 SEROLOGY POSITIVE [None]
  - PERIVASCULAR DERMATITIS [None]
  - RASH MACULO-PAPULAR [None]
  - SKIN BURNING SENSATION [None]
  - SKIN EXFOLIATION [None]
  - STREPTOCOCCAL IDENTIFICATION TEST POSITIVE [None]
  - WHITE BLOOD CELL COUNT INCREASED [None]
